FAERS Safety Report 9890961 (Version 1)
Quarter: 2014Q1

REPORT INFORMATION
  Report Type: Spontaneous
  Country: US (occurrence: None)
  Receive Date: 20140207
  Receipt Date: 20140207
  Transmission Date: 20141002
  Serious: Yes (Death)
  Sender: FDA-Public Use
  Company Number: SYM-2014-15584

PATIENT
  Age: 44 Year
  Sex: Male

DRUGS (8)
  1. DILTIAZEM (DILTIAZEM) (DILTIAZEM) [Suspect]
     Indication: PRODUCT USED FOR UNKNOWN INDICATION
     Dosage: PARENTAL  UNKNOWN - UNKNOWN  THERAPY DATES
     Route: 051
  2. TOPIRAMATE [Concomitant]
     Indication: PRODUCT USED FOR UNKNOWN INDICATION
     Dosage: PARENTERAL UNKNOWN - UNKNOWN THERAPY DATES
     Route: 051
  3. OLANZAPINE [Suspect]
     Indication: PRODUCT USED FOR UNKNOWN INDICATION
     Dosage: PARENTERAL UNKNOWN - UNKNOWN THERAPY DATES
     Route: 051
  4. HEROIN (DIAMORPHINE) (DIAMORPHINE) [Suspect]
     Indication: PRODUCT USED FOR UNKNOWN INDICATION
     Dosage: PARENTERAL UNKNOWN - UNKNOWN THERAPY DATES
     Route: 051
  5. METHADONE (METHADONE) (METHADONE) [Suspect]
     Indication: PRODUCT USED FOR UNKNOWN INDICATION
     Dosage: PARENTERAL  UNKNOWN UNKNOWN  THERAPY DATES
     Route: 051
  6. COCAINE (COCAINE) (COCAINE) [Suspect]
     Indication: PRODUCT USED FOR UNKNOWN INDICATION
     Dosage: PARENTERAL.
  7. DEXTROMETHORPHAN [Suspect]
     Indication: PRODUCT USED FOR UNKNOWN INDICATION
     Dosage: PARENTERAL  UNKNOWN - UNKNOWN THERAPY DATES
     Route: 051
  8. CODEINE (CODEINE) (CODEINE) [Suspect]
     Indication: PRODUCT USED FOR UNKNOWN INDICATION
     Dosage: PARENTERAL.

REACTIONS (2)
  - Drug abuse [None]
  - Toxicity to various agents [None]
